FAERS Safety Report 23950678 (Version 1)
Quarter: 2024Q2

REPORT INFORMATION
  Report Type: Report from Study
  Country: IT (occurrence: IT)
  Receive Date: 20240607
  Receipt Date: 20240607
  Transmission Date: 20240716
  Serious: No
  Sender: FDA-Public Use
  Company Number: IT-SPRINGWORKS THERAPEUTICS-SW-001648

PATIENT
  Age: 28 Year
  Sex: Female

DRUGS (3)
  1. NIROGACESTAT [Suspect]
     Active Substance: NIROGACESTAT
     Indication: Desmoid tumour
     Dosage: 150 MILLIGRAM, BID
     Route: 048
     Dates: start: 20240323, end: 20240516
  2. EDOXABAN [Concomitant]
     Active Substance: EDOXABAN
     Indication: Product used for unknown indication
     Dosage: 30 MILLIGRAM, 1 TABLET
     Route: 065
  3. ESOMEPRAZOLE [Concomitant]
     Active Substance: ESOMEPRAZOLE
     Indication: Product used for unknown indication
     Dosage: 20 MILLIGRAM, 1 TABLET BEFORE BREAKFAST
     Route: 065

REACTIONS (1)
  - Diarrhoea [Not Recovered/Not Resolved]

NARRATIVE: CASE EVENT DATE: 20240419
